FAERS Safety Report 14476553 (Version 2)
Quarter: 2020Q2

REPORT INFORMATION
  Report Type: Spontaneous
  Country: US (occurrence: US)
  Receive Date: 20180201
  Receipt Date: 20200410
  Transmission Date: 20200713
  Serious: No
  Sender: FDA-Public Use
  Company Number: US-SA-2017SA225384

PATIENT
  Age: 67 Year
  Sex: Female
  Weight: 74.84 kg

DRUGS (19)
  1. ACETYLSALICYLIC ACID [Concomitant]
     Active Substance: ASPIRIN
     Dosage: 81 MG,UNK
     Route: 065
  2. ACICLOVIR [Concomitant]
     Active Substance: ACYCLOVIR
     Dosage: UNK
  3. SPIRONOLACTONE. [Concomitant]
     Active Substance: SPIRONOLACTONE
  4. PRALUENT [Suspect]
     Active Substance: ALIROCUMAB
     Indication: HYPERLIPIDAEMIA
     Dosage: 75 MG,QOW
     Route: 058
     Dates: start: 20171001, end: 20171130
  5. PRALUENT [Suspect]
     Active Substance: ALIROCUMAB
     Dosage: 75 MG,QOW
  6. SALBUTAMOL [Concomitant]
     Active Substance: ALBUTEROL
  7. ZOLPIDEM [Concomitant]
     Active Substance: ZOLPIDEM TARTRATE
  8. LIOTHYRONINE [Concomitant]
     Active Substance: LIOTHYRONINE
  9. FLUTICASONE. [Concomitant]
     Active Substance: FLUTICASONE
  10. NITROGLYCERINE [Concomitant]
     Active Substance: NITROGLYCERIN
  11. OMEGA-3 FATTY ACIDS [Concomitant]
     Active Substance: OMEGA-3 FATTY ACIDS
  12. LEVOTHYROXINE. [Concomitant]
     Active Substance: LEVOTHYROXINE
  13. ARMODAFINIL. [Concomitant]
     Active Substance: ARMODAFINIL
  14. DIAZEPAM. [Concomitant]
     Active Substance: DIAZEPAM
  15. FLUCONAZOLE. [Concomitant]
     Active Substance: FLUCONAZOLE
  16. OXYCODONE [Concomitant]
     Active Substance: OXYCODONE
  17. PROGESTERONE. [Concomitant]
     Active Substance: PROGESTERONE
  18. METOPROLOL TARTRATE. [Concomitant]
     Active Substance: METOPROLOL TARTRATE
  19. TESTOSTERONE. [Concomitant]
     Active Substance: TESTOSTERONE

REACTIONS (8)
  - Back pain [Not Recovered/Not Resolved]
  - Injection site mass [Unknown]
  - Flank pain [Not Recovered/Not Resolved]
  - Weight decreased [Unknown]
  - Arthralgia [Not Recovered/Not Resolved]
  - Weight increased [Not Recovered/Not Resolved]
  - Abdominal distension [Unknown]
  - Condition aggravated [Unknown]

NARRATIVE: CASE EVENT DATE: 2017
